FAERS Safety Report 7846449-6 (Version None)
Quarter: 2011Q4

REPORT INFORMATION
  Report Type: 
  Country: None (occurrence: None)
  Receive Date: 20111025
  Receipt Date: 20111025
  Transmission Date: 20120403
  Serious: Yes (Other)
  Sender: FDA-Public Use
  Company Number: None

PATIENT
  Age: 50 Year
  Sex: Male
  Weight: 72.574 kg

DRUGS (1)
  1. LEXAPRO [Suspect]
     Dosage: 10MG
     Route: 048
     Dates: start: 20110426, end: 20111009

REACTIONS (3)
  - DIZZINESS [None]
  - VISUAL IMPAIRMENT [None]
  - VERTIGO [None]
